FAERS Safety Report 5644703-X (Version None)
Quarter: 2008Q1

REPORT INFORMATION
  Report Type: 
  Country: None (occurrence: None)
  Receive Date: 20080229
  Receipt Date: 20070604
  Transmission Date: 20080703
  Serious: No
  Sender: FDA-Public Use
  Company Number: A0654356A

PATIENT
  Sex: Male
  Weight: 131.8 kg

DRUGS (1)
  1. VALTREX [Suspect]
     Indication: HERPES OPHTHALMIC
     Dosage: 500MG SEE DOSAGE TEXT
     Route: 048

REACTIONS (1)
  - DRUG INEFFECTIVE [None]
